FAERS Safety Report 10042807 (Version 1)
Quarter: 2014Q1

REPORT INFORMATION
  Report Type: Spontaneous
  Country: FR (occurrence: FR)
  Receive Date: 20140327
  Receipt Date: 20140327
  Transmission Date: 20141002
  Serious: Yes (Hospitalization)
  Sender: FDA-Public Use
  Company Number: PHHY2014FR034204

PATIENT
  Age: 50 Year
  Sex: Male

DRUGS (2)
  1. DICLOFENAC SANDOZ [Suspect]
     Indication: BURSITIS
     Dosage: 1 DF, TID
     Route: 048
     Dates: start: 20130118, end: 20130123
  2. KLIPAL CODEINE [Concomitant]
     Indication: BURSITIS
     Dosage: UNK

REACTIONS (2)
  - Dermo-hypodermitis [Recovered/Resolved]
  - Beta haemolytic streptococcal infection [Recovered/Resolved]
